FAERS Safety Report 9728279 (Version 2)
Quarter: 2013Q4

REPORT INFORMATION
  Report Type: Report from Study
  Country: US (occurrence: US)
  Receive Date: 20131204
  Receipt Date: 20131204
  Transmission Date: 20140711
  Serious: Yes (Death, Hospitalization)
  Sender: FDA-Public Use
  Company Number: US-ROCHE-1294252

PATIENT
  Sex: Male
  Weight: 66 kg

DRUGS (6)
  1. PEG-INTERFERON ALFA 2A [Suspect]
     Indication: HEPATITIS C
     Route: 058
     Dates: start: 20080622, end: 20131027
  2. RIBAVIRIN [Suspect]
     Indication: HEPATITIS C
     Route: 048
     Dates: start: 20080622, end: 20130318
  3. RIBAVIRIN [Suspect]
     Route: 048
     Dates: start: 20130514, end: 20131027
  4. SOFOSBUVIR [Suspect]
     Indication: HEPATITIS C
     Route: 048
     Dates: start: 20130514, end: 20131027
  5. RIFAXIMIN [Concomitant]
  6. TACROLIMUS [Concomitant]

REACTIONS (2)
  - Encephalopathy [Fatal]
  - Lethargy [Fatal]
